FAERS Safety Report 13437275 (Version 2)
Quarter: 2017Q2

REPORT INFORMATION
  Report Type: Spontaneous
  Country: JP (occurrence: JP)
  Receive Date: 20170413
  Receipt Date: 20170609
  Transmission Date: 20170830
  Serious: Yes (Hospitalization)
  Sender: FDA-Public Use
  Company Number: JP-ELI_LILLY_AND_COMPANY-JP201704004208

PATIENT
  Age: 77 Year
  Sex: Male
  Weight: 61 kg

DRUGS (4)
  1. TS-1 [Suspect]
     Active Substance: GIMERACIL\OTERACIL\TEGAFUR
     Indication: COLON CANCER
     Dosage: 120 MG, QD
     Route: 065
     Dates: start: 20170119, end: 20170330
  2. ERBITUX [Suspect]
     Active Substance: CETUXIMAB
     Indication: COLON CANCER
     Dosage: 680 MG/M2, SINGLE
     Route: 042
     Dates: start: 20170119, end: 20170119
  3. ERBITUX [Suspect]
     Active Substance: CETUXIMAB
     Dosage: 425 MG/M2, WEEKLY (1/W)
     Route: 042
     Dates: start: 201701, end: 20170323
  4. CPT-11 [Suspect]
     Active Substance: IRINOTECAN
     Indication: COLON CANCER
     Dosage: 250 MG/M2, UNKNOWN
     Route: 042
     Dates: start: 20170119, end: 20170323

REACTIONS (5)
  - Neutrophil count decreased [Recovering/Resolving]
  - White blood cell count decreased [Recovering/Resolving]
  - Off label use [Unknown]
  - Blood pressure decreased [Recovering/Resolving]
  - Decreased appetite [Recovering/Resolving]

NARRATIVE: CASE EVENT DATE: 20170119
